FAERS Safety Report 9094476 (Version 1)
Quarter: 2013Q1

REPORT INFORMATION
  Report Type: Spontaneous
  Country: US (occurrence: US)
  Receive Date: 20130218
  Receipt Date: 20130218
  Transmission Date: 20140127
  Serious: Yes (Other)
  Sender: FDA-Public Use
  Company Number: US-UCBSA-078046

PATIENT
  Sex: Female

DRUGS (2)
  1. CIMZIA [Suspect]
  2. REMICADE [Suspect]

REACTIONS (3)
  - Injection site reaction [Unknown]
  - Rash [Unknown]
  - Infusion related reaction [Unknown]
